FAERS Safety Report 11402970 (Version 1)
Quarter: 2015Q3

REPORT INFORMATION
  Report Type: Spontaneous
  Country: US (occurrence: US)
  Receive Date: 20150821
  Receipt Date: 20150821
  Transmission Date: 20151125
  Serious: Yes (Other)
  Sender: FDA-Public Use
  Company Number: US-ROCHE-1285990

PATIENT
  Age: 23 Year
  Sex: Male
  Weight: 69.92 kg

DRUGS (6)
  1. PEGASYS [Suspect]
     Active Substance: PEGINTERFERON ALFA-2A
     Indication: HEPATITIS C
     Route: 058
     Dates: start: 20130426, end: 20131004
  2. KEPPRA [Concomitant]
     Active Substance: LEVETIRACETAM
     Indication: EPILEPSY
     Route: 048
  3. CELEXA (UNITED STATES) [Concomitant]
     Indication: ANXIETY
     Route: 048
  4. COPEGUS [Suspect]
     Active Substance: RIBAVIRIN
     Indication: ADRENOGENITAL SYNDROME
     Route: 048
     Dates: start: 20130426, end: 20131004
  5. PEGASYS [Suspect]
     Active Substance: PEGINTERFERON ALFA-2A
     Indication: ADRENOGENITAL SYNDROME
  6. INCIVEK [Suspect]
     Active Substance: TELAPREVIR
     Indication: ADRENOGENITAL SYNDROME
     Route: 065
     Dates: end: 20131004

REACTIONS (1)
  - Seizure [Unknown]

NARRATIVE: CASE EVENT DATE: 20130924
